FAERS Safety Report 5611502-4 (Version None)
Quarter: 2008Q1

REPORT INFORMATION
  Report Type: 
  Country: None (occurrence: None)
  Receive Date: 20080201
  Receipt Date: 20080122
  Transmission Date: 20080703
  Serious: Yes (Hospitalization)
  Sender: FDA-Public Use
  Company Number: ES-ROCHE-539005

PATIENT
  Age: 49 Year
  Sex: Female

DRUGS (4)
  1. NAPROSYN [Suspect]
     Indication: HEADACHE
     Route: 048
     Dates: start: 20071204, end: 20071207
  2. EUTIROX [Concomitant]
     Route: 048
     Dates: start: 20070101, end: 20071207
  3. LENDORMIN [Concomitant]
     Route: 048
     Dates: start: 20020101, end: 20071207
  4. TENORMIN [Concomitant]
     Indication: HYPERTENSION
     Route: 048
     Dates: start: 20070701, end: 20071207

REACTIONS (1)
  - LEUKOCYTOSIS [None]
